FAERS Safety Report 22004791 (Version 1)
Quarter: 2023Q1

REPORT INFORMATION
  Report Type: Spontaneous
  Country: US (occurrence: None)
  Receive Date: 20230216
  Receipt Date: 20230216
  Transmission Date: 20230417
  Serious: No
  Sender: FDA-Public Use
  Company Number: None

PATIENT
  Age: 71 Year
  Sex: Male
  Weight: 143.24 kg

DRUGS (11)
  1. ABIRATERONE [Suspect]
     Active Substance: ABIRATERONE
     Indication: Prostate cancer
     Dosage: FREQUENCY : DAILY;?
     Route: 048
  2. MINERALS\VITAMINS [Concomitant]
     Active Substance: MINERALS\VITAMINS
  3. NORCO [Concomitant]
     Active Substance: ACETAMINOPHEN\HYDROCODONE BITARTRATE
  4. IBUPROFEN [Concomitant]
     Active Substance: IBUPROFEN
  5. LOSARTAN [Concomitant]
  6. LUPRON [Concomitant]
     Active Substance: LEUPROLIDE ACETATE
  7. OYSTER SHELL CALCIUM + D [Concomitant]
  8. PREDNISONE [Concomitant]
     Active Substance: PREDNISONE
  9. VERAPAMIL [Suspect]
     Active Substance: VERAPAMIL HYDROCHLORIDE
  10. WARFARIN [Concomitant]
     Active Substance: WARFARIN
  11. XTANDI [Concomitant]
     Active Substance: ENZALUTAMIDE

REACTIONS (1)
  - Prostate cancer [None]
